FAERS Safety Report 6221223-5 (Version None)
Quarter: 2009Q2

REPORT INFORMATION
  Report Type: 
  Country: None (occurrence: None)
  Receive Date: 20090610
  Receipt Date: 20090603
  Transmission Date: 20091009
  Serious: Yes (Hospitalization)
  Sender: FDA-Public Use
  Company Number: AU-NOVOPROD-288018

PATIENT
  Age: 6 Year
  Sex: Male
  Weight: 26 kg

DRUGS (10)
  1. NOVOSEVEN [Suspect]
     Indication: HAEMORRHAGE
     Dosage: 2.4 MG, UNK
     Dates: start: 20081113, end: 20081113
  2. HEPARIN [Concomitant]
     Dates: start: 20081112
  3. ACTIVASE [Concomitant]
     Dates: start: 20081112
  4. PROTAMINE SULFATE [Concomitant]
  5. FRESH FROZEN PLASMA [Concomitant]
     Dosage: 5 BEFORE NOVOSEVEN
  6. FRESH FROZEN PLASMA [Concomitant]
     Dosage: 2 AFTER NOVOSEVEN
  7. PLATELETS [Concomitant]
     Dosage: 4 BEFORE NOVOSEVEN
  8. PLATELETS [Concomitant]
     Dosage: 1 AFTER NOVOSEVEN
  9. BLOOD CELLS, PACKED HUMAN [Concomitant]
     Dosage: 9 UNK, UNK
  10. ALBUMEX 20 [Concomitant]
     Dosage: 100 UNK, UNK

REACTIONS (2)
  - MULTI-ORGAN FAILURE [None]
  - PERIPHERAL ISCHAEMIA [None]
